FAERS Safety Report 8809063 (Version 1)
Quarter: 2012Q4

REPORT INFORMATION
  Report Type: 
  Country: JP (occurrence: JP)
  Receive Date: 20120926
  Receipt Date: 20120926
  Transmission Date: 20130627
  Serious: Yes (Life-Threatening, Hospitalization)
  Sender: FDA-Public Use
  Company Number: JP-CELGENEUS-087-21660-12063635

PATIENT
  Age: 46 Year
  Sex: Female
  Weight: 44 kg

DRUGS (8)
  1. ABRAXANE [Suspect]
     Indication: BREAST CANCER METASTATIC
     Dosage: 310 Milligram
     Route: 041
     Dates: start: 20120507, end: 20120507
  2. ENDOXAN [Suspect]
     Indication: BREAST CANCER METASTATIC
     Dosage: 570 Milligram
     Route: 065
     Dates: start: 20120507, end: 20120507
  3. VOLTAREN [Concomitant]
     Indication: FEVER
     Route: 065
     Dates: start: 201205
  4. NEXIUM [Concomitant]
     Indication: DRUG USE FOR UNKNOWN INDICATION
     Route: 048
  5. GASTER [Concomitant]
     Indication: DRUG USE FOR UNKNOWN INDICATION
     Route: 048
  6. PARIET [Concomitant]
     Indication: DRUG USE FOR UNKNOWN INDICATION
     Route: 048
  7. LEUCON [Concomitant]
     Indication: DRUG USE FOR UNKNOWN INDICATION
     Route: 048
  8. CEPHARANTHINE [Concomitant]
     Indication: DRUG USE FOR UNKNOWN INDICATION
     Route: 048

REACTIONS (2)
  - Febrile neutropenia [Recovered/Resolved]
  - Septic shock [Recovered/Resolved]
